FAERS Safety Report 16466824 (Version 1)
Quarter: 2019Q2

REPORT INFORMATION
  Report Type: Spontaneous
  Country: CN (occurrence: CN)
  Receive Date: 20190624
  Receipt Date: 20190624
  Transmission Date: 20190711
  Serious: Yes (Other)
  Sender: FDA-Public Use
  Company Number: CN-ROCHE-2335528

PATIENT
  Age: 77 Year
  Sex: Female

DRUGS (25)
  1. BEVACIZUMAB. [Suspect]
     Active Substance: BEVACIZUMAB
     Indication: METASTASES TO LIVER
     Route: 065
     Dates: start: 20140109
  2. OXALIPLATIN. [Concomitant]
     Active Substance: OXALIPLATIN
     Indication: COLON CANCER
     Route: 065
     Dates: start: 20130407
  3. OXALIPLATIN. [Concomitant]
     Active Substance: OXALIPLATIN
     Indication: METASTASES TO LIVER
     Route: 065
     Dates: start: 20150312, end: 20150626
  4. RALTITREXED [Concomitant]
     Active Substance: RALTITREXED
     Indication: COLON CANCER
     Route: 065
     Dates: start: 20140625, end: 20140806
  5. HYDROXYCAMPTOTHECIN [Concomitant]
     Active Substance: 10-HYDROXYCAMPTOTHECIN
     Indication: COLON CANCER
     Route: 033
     Dates: start: 20150827, end: 20151110
  6. BEVACIZUMAB. [Suspect]
     Active Substance: BEVACIZUMAB
     Route: 065
     Dates: start: 20140827
  7. BEVACIZUMAB. [Suspect]
     Active Substance: BEVACIZUMAB
     Route: 041
     Dates: start: 20150827
  8. BEVACIZUMAB. [Suspect]
     Active Substance: BEVACIZUMAB
     Indication: OFF LABEL USE
     Route: 065
     Dates: start: 20140625
  9. BEVACIZUMAB. [Suspect]
     Active Substance: BEVACIZUMAB
     Route: 065
     Dates: start: 20150312
  10. CAPECITABINE. [Suspect]
     Active Substance: CAPECITABINE
     Indication: METASTASES TO LIVER
     Route: 065
     Dates: start: 20140109
  11. HYDROXYCAMPTOTHECIN [Concomitant]
     Active Substance: 10-HYDROXYCAMPTOTHECIN
     Indication: METASTASES TO LIVER
  12. BEVACIZUMAB. [Suspect]
     Active Substance: BEVACIZUMAB
     Indication: COLON CANCER
     Route: 065
     Dates: start: 20130407
  13. OXALIPLATIN. [Concomitant]
     Active Substance: OXALIPLATIN
     Indication: OFF LABEL USE
  14. IRINOTECAN [Concomitant]
     Active Substance: IRINOTECAN
     Indication: COLON CANCER
     Route: 065
     Dates: start: 20140625, end: 20140806
  15. IRINOTECAN [Concomitant]
     Active Substance: IRINOTECAN
     Indication: OFF LABEL USE
  16. BEVACIZUMAB. [Suspect]
     Active Substance: BEVACIZUMAB
     Route: 065
     Dates: start: 20151120
  17. CAPECITABINE. [Suspect]
     Active Substance: CAPECITABINE
     Indication: OFF LABEL USE
  18. RALTITREXED [Concomitant]
     Active Substance: RALTITREXED
     Indication: OFF LABEL USE
     Route: 065
     Dates: start: 20150312, end: 20150626
  19. RALTITREXED [Concomitant]
     Active Substance: RALTITREXED
     Route: 065
     Dates: start: 20150710, end: 20150821
  20. HYDROXYCAMPTOTHECIN [Concomitant]
     Active Substance: 10-HYDROXYCAMPTOTHECIN
     Indication: OFF LABEL USE
  21. BEVACIZUMAB. [Suspect]
     Active Substance: BEVACIZUMAB
     Route: 042
     Dates: start: 20160101
  22. IRINOTECAN [Concomitant]
     Active Substance: IRINOTECAN
     Indication: METASTASES TO LIVER
     Route: 065
     Dates: start: 20151120, end: 20160406
  23. RALTITREXED [Concomitant]
     Active Substance: RALTITREXED
     Indication: METASTASES TO LIVER
     Route: 065
     Dates: start: 20140827, end: 20150216
  24. BEVACIZUMAB. [Suspect]
     Active Substance: BEVACIZUMAB
     Route: 065
     Dates: start: 20150710
  25. CAPECITABINE. [Suspect]
     Active Substance: CAPECITABINE
     Indication: COLON CANCER
     Route: 048
     Dates: start: 20130407

REACTIONS (6)
  - Off label use [Unknown]
  - Palmar-plantar erythrodysaesthesia syndrome [Unknown]
  - Intentional product use issue [Unknown]
  - Nausea [Unknown]
  - Bone marrow failure [Unknown]
  - Vomiting [Unknown]
